FAERS Safety Report 8788035 (Version 2)
Quarter: 2012Q4

REPORT INFORMATION
  Report Type: 
  Country: KR (occurrence: KR)
  Receive Date: 20120914
  Receipt Date: 20120920
  Transmission Date: 20130627
  Serious: Yes (Death, Other)
  Sender: FDA-Public Use
  Company Number: KR-ELI_LILLY_AND_COMPANY-KR201209003395

PATIENT
  Age: 55 Year
  Sex: Female
  Weight: 45.1 kg

DRUGS (2)
  1. GEMCITABINE HYDROCHLORIDE [Suspect]
     Indication: ADENOCARCINOMA PANCREAS
     Dosage: 950 mg/m2, weekly (1/W)
     Route: 042
     Dates: start: 20051014, end: 20051014
  2. CISPLATIN [Concomitant]
     Indication: ADENOCARCINOMA PANCREAS
     Dosage: 60 mg/m2, other

REACTIONS (4)
  - Neutropenic sepsis [Fatal]
  - Neoplasm progression [Fatal]
  - Cholangitis [Unknown]
  - Klebsiella sepsis [None]
